FAERS Safety Report 26137411 (Version 1)
Quarter: 2025Q4

REPORT INFORMATION
  Report Type: Spontaneous
  Country: AU (occurrence: AU)
  Receive Date: 20251209
  Receipt Date: 20251209
  Transmission Date: 20260117
  Serious: Yes (Other)
  Sender: PURDUE
  Company Number: AU-PURDUE-USA-2025-0322831

PATIENT
  Sex: Female

DRUGS (4)
  1. NORSPAN [Interacting]
     Active Substance: BUPRENORPHINE
     Indication: Product used for unknown indication
     Dosage: UNK
     Route: 065
  2. DIFLUCAN [Interacting]
     Active Substance: FLUCONAZOLE
     Indication: Meningitis cryptococcal
     Dosage: 1 DOSE
     Route: 048
  3. FENTANYL CITRATE [Interacting]
     Active Substance: FENTANYL CITRATE
     Indication: Product used for unknown indication
     Dosage: UNK
     Route: 065
  4. GABAPENTIN [Concomitant]
     Active Substance: GABAPENTIN
     Indication: Product used for unknown indication
     Dosage: UNK
     Route: 065

REACTIONS (5)
  - Autoimmune disorder [Unknown]
  - Drug interaction [Unknown]
  - Muscular weakness [Unknown]
  - Therapeutic product effect decreased [Unknown]
  - Meningitis cryptococcal [Unknown]
